FAERS Safety Report 11644174 (Version 1)
Quarter: 2015Q4

REPORT INFORMATION
  Report Type: Spontaneous
  Country: US (occurrence: None)
  Receive Date: 20151019
  Receipt Date: 20151019
  Transmission Date: 20160304
  Serious: Yes (Disabling)
  Sender: FDA-Public Use
  Company Number: None

PATIENT
  Age: 50 Year
  Sex: Male

DRUGS (13)
  1. TACROLIMUS. [Concomitant]
     Active Substance: TACROLIMUS
  2. VORICONAZOLE. [Concomitant]
     Active Substance: VORICONAZOLE
  3. BECLOMETHASONE [Concomitant]
     Active Substance: BECLOMETHASONE
  4. LEVOFLOXACIN 500 MG ZYDUS [Suspect]
     Active Substance: LEVOFLOXACIN
     Indication: ANTIBIOTIC PROPHYLAXIS
     Route: 048
     Dates: start: 20150801, end: 20150925
  5. SIROLIMUS. [Concomitant]
     Active Substance: SIROLIMUS
  6. BUDESINIDE [Concomitant]
  7. POMALIDOMIDE [Concomitant]
     Active Substance: POMALIDOMIDE
  8. AMLODIPINE [Concomitant]
     Active Substance: AMLODIPINE BESYLATE
  9. OMEPRAZOLE. [Concomitant]
     Active Substance: OMEPRAZOLE
  10. PREDNISONE. [Concomitant]
     Active Substance: PREDNISONE
  11. VELCADE [Concomitant]
     Active Substance: BORTEZOMIB
  12. AMBIEN [Concomitant]
     Active Substance: ZOLPIDEM TARTRATE
  13. ATIVAN [Concomitant]
     Active Substance: LORAZEPAM

REACTIONS (1)
  - Unevaluable event [None]

NARRATIVE: CASE EVENT DATE: 20150925
